FAERS Safety Report 5102398-8 (Version None)
Quarter: 2006Q3

REPORT INFORMATION
  Report Type: 
  Country: None (occurrence: None)
  Receive Date: 20060912
  Receipt Date: 20060830
  Transmission Date: 20061208
  Serious: Yes (Hospitalization, Other)
  Sender: FDA-Public Use
  Company Number: PHHO2006JP14615

PATIENT
  Age: 79 Year
  Sex: Male

DRUGS (5)
  1. CGP 48933 [Suspect]
     Indication: HYPERTENSION
     Dosage: 80 MG, QD
     Route: 048
     Dates: start: 20030704
  2. 8-HOUR BAYER [Concomitant]
     Indication: ANGINA PECTORIS
  3. ALLOPURINOL [Concomitant]
     Indication: HYPERURICAEMIA
  4. SIGMART [Concomitant]
     Indication: ANGINA PECTORIS
  5. LIPITOR [Concomitant]
     Indication: HYPERCHOLESTEROLAEMIA

REACTIONS (4)
  - ANGINA PECTORIS [None]
  - CORONARY ARTERY STENOSIS [None]
  - ELECTROCARDIOGRAM ST SEGMENT DEPRESSION [None]
  - STENT PLACEMENT [None]
